FAERS Safety Report 8533970-0 (Version None)
Quarter: 2012Q3

REPORT INFORMATION
  Report Type: 
  Country: None (occurrence: None)
  Receive Date: 20120705
  Receipt Date: 20120620
  Transmission Date: 20120928
  Serious: Yes (Hospitalization, Other)
  Sender: FDA-Public Use
  Company Number: 2012032342

PATIENT
  Sex: Female
  Weight: 53.0709 kg

DRUGS (5)
  1. BERINERT [Suspect]
     Indication: HEREDITARY ANGIOEDEMA
     Dosage: SEE IMAGE
     Route: 042
     Dates: start: 20101201
  2. BERINERT [Suspect]
     Indication: HEREDITARY ANGIOEDEMA
     Dosage: SEE IMAGE
     Route: 042
     Dates: start: 20120424
  3. BERINERT [Suspect]
     Indication: HEREDITARY ANGIOEDEMA
     Dosage: SEE IMAGE
     Route: 042
     Dates: start: 20120512
  4. ZOFRAN [Concomitant]
  5. DILAUDID [Concomitant]

REACTIONS (3)
  - VOMITING [None]
  - ABDOMINAL PAIN [None]
  - HEREDITARY ANGIOEDEMA [None]
